FAERS Safety Report 11152696 (Version 1)
Quarter: 2015Q2

REPORT INFORMATION
  Report Type: Spontaneous
  Country: BR (occurrence: BR)
  Receive Date: 20150601
  Receipt Date: 20150601
  Transmission Date: 20150821
  Serious: Yes (Other)
  Sender: FDA-Public Use
  Company Number: BR-PFIZER INC-2015178542

PATIENT
  Age: 55 Year
  Sex: Male
  Weight: 78 kg

DRUGS (1)
  1. LIPITOR [Suspect]
     Active Substance: ATORVASTATIN CALCIUM
     Dosage: UNK
     Route: 048
     Dates: start: 20120602

REACTIONS (2)
  - Herpes zoster [Not Recovered/Not Resolved]
  - Neoplasm malignant [Unknown]

NARRATIVE: CASE EVENT DATE: 2015
